FAERS Safety Report 4959485-4 (Version None)
Quarter: 2006Q1

REPORT INFORMATION
  Report Type: 
  Country: None (occurrence: None)
  Receive Date: 20060331
  Receipt Date: 20041001
  Transmission Date: 20060701
  Serious: Yes (Hospitalization)
  Sender: FDA-Public Use
  Company Number: NZ-MERCK-0410NZL00004

PATIENT
  Age: 68 Year
  Sex: Male
  Weight: 85 kg

DRUGS (4)
  1. VIOXX [Suspect]
     Indication: OSTEOARTHRITIS
     Route: 048
     Dates: start: 20001122, end: 20041001
  2. ZOCOR [Concomitant]
     Indication: HYPERLIPIDAEMIA
     Route: 048
     Dates: start: 20040916
  3. OMEPRAZOLE [Concomitant]
     Indication: REFLUX GASTRITIS
     Route: 048
     Dates: start: 20010115
  4. ATENOLOL [Concomitant]
     Indication: HYPERTENSION
     Route: 048
     Dates: start: 19960101

REACTIONS (3)
  - ASPIRATION [None]
  - INSOMNIA [None]
  - MYOCARDIAL INFARCTION [None]
